FAERS Safety Report 5969948-0 (Version None)
Quarter: 2008Q4

REPORT INFORMATION
  Report Type: 
  Country: None (occurrence: None)
  Receive Date: 20081126
  Receipt Date: 20081003
  Transmission Date: 20090506
  Serious: No
  Sender: FDA-Public Use
  Company Number: US-ABBOTT-08P-163-0479918-00

PATIENT
  Sex: Male

DRUGS (2)
  1. SIMCOR [Suspect]
     Indication: DRUG USE FOR UNKNOWN INDICATION
     Dosage: 500MG/20 MG
     Dates: start: 20080901
  2. SIMCOR [Suspect]
     Dosage: 1000MG/20MG
     Dates: start: 20081002

REACTIONS (1)
  - FEELING HOT [None]
